FAERS Safety Report 5336659-4 (Version None)
Quarter: 2007Q2

REPORT INFORMATION
  Report Type: 
  Country: None (occurrence: None)
  Receive Date: 20070524
  Receipt Date: 20070508
  Transmission Date: 20071010
  Serious: Yes (Hospitalization)
  Sender: FDA-Public Use
  Company Number: 2007BI003522

PATIENT
  Age: 53 Year
  Sex: Male

DRUGS (9)
  1. NATALIZUMAB [Suspect]
     Indication: MULTIPLE SCLEROSIS
     Dosage: SEE IMAGE
     Route: 042
     Dates: start: 20050127, end: 20050101
  2. NATALIZUMAB [Suspect]
     Indication: MULTIPLE SCLEROSIS
     Dosage: SEE IMAGE
     Route: 042
     Dates: start: 20061206, end: 20070131
  3. BACLOFEN [Concomitant]
  4. HYOSCYAMINE [Concomitant]
  5. AVODART [Concomitant]
  6. UROXATRAL [Concomitant]
  7. PREDNISOLONE [Concomitant]
  8. TIZANIDINE HCL [Concomitant]
  9. LEXAPRO [Concomitant]

REACTIONS (10)
  - AUTOIMMUNE DISORDER [None]
  - AUTOIMMUNE THROMBOCYTOPENIA [None]
  - BLOOD GLUCOSE INCREASED [None]
  - CUSHINGOID [None]
  - DRUG DOSE OMISSION [None]
  - IDIOPATHIC THROMBOCYTOPENIC PURPURA [None]
  - MULTIPLE SCLEROSIS [None]
  - NO THERAPEUTIC RESPONSE [None]
  - RASH [None]
  - WEIGHT INCREASED [None]
